FAERS Safety Report 7973664-3 (Version None)
Quarter: 2011Q4

REPORT INFORMATION
  Report Type: 
  Country: None (occurrence: None)
  Receive Date: 20111201
  Receipt Date: 20111121
  Transmission Date: 20120403
  Serious: Yes (Life-Threatening, Hospitalization)
  Sender: FDA-Public Use
  Company Number: 2011SP053693

PATIENT
  Age: 48 Year
  Sex: Female

DRUGS (2)
  1. CELESTONE SOLUSPAN [Suspect]
     Indication: INFLAMMATION
     Dosage: 2 ML; IM
     Route: 030
     Dates: start: 20110913
  2. CELESTONE SOLUSPAN [Suspect]
     Indication: CARPAL TUNNEL SYNDROME
     Dosage: 2 ML; IM
     Route: 030
     Dates: start: 20110913

REACTIONS (3)
  - PARAESTHESIA [None]
  - FEELING HOT [None]
  - HYPERSENSITIVITY [None]
